FAERS Safety Report 14170503 (Version 1)
Quarter: 2017Q4

REPORT INFORMATION
  Report Type: Spontaneous
  Country: US (occurrence: None)
  Receive Date: 20171108
  Receipt Date: 20171108
  Transmission Date: 20180321
  Serious: No
  Sender: FDA-Public Use
  Company Number: None

PATIENT
  Age: 81 Year
  Sex: Female
  Weight: 54.43 kg

DRUGS (9)
  1. GAS-X [Concomitant]
     Active Substance: DIMETHICONE
  2. PROPRANOLO HCL 40MG TAB HERI [Suspect]
     Active Substance: PROPRANOLOL HYDROCHLORIDE
     Indication: HYPERTENSION
     Route: 048
     Dates: start: 20170701
  3. PROPRANOLO HCL 40MG TAB HERI [Suspect]
     Active Substance: PROPRANOLOL HYDROCHLORIDE
     Indication: ANXIETY
     Route: 048
     Dates: start: 20170701
  4. ALPRAZOLAM. [Concomitant]
     Active Substance: ALPRAZOLAM
  5. GAVISCON [Concomitant]
     Active Substance: ALUMINUM HYDROXIDE\MAGNESIUM CARBONATE
  6. PROPRANOLO HCL 40MG TAB HERI [Suspect]
     Active Substance: PROPRANOLOL HYDROCHLORIDE
     Indication: RHEUMATIC FEVER
     Route: 048
     Dates: start: 20170701
  7. LOSARTAN POTASSIUM. [Concomitant]
     Active Substance: LOSARTAN POTASSIUM
  8. MULTIVITAMINS [Concomitant]
     Active Substance: VITAMINS
  9. VITAMIN D [Concomitant]
     Active Substance: CHOLECALCIFEROL

REACTIONS (7)
  - Pain in extremity [None]
  - Joint swelling [None]
  - Urine odour abnormal [None]
  - Arthritis [None]
  - Product substitution issue [None]
  - Pain [None]
  - Heart rate increased [None]

NARRATIVE: CASE EVENT DATE: 20170731
